FAERS Safety Report 11749316 (Version 1)
Quarter: 2015Q4

REPORT INFORMATION
  Report Type: Spontaneous
  Country: US (occurrence: US)
  Receive Date: 20151118
  Receipt Date: 20151118
  Transmission Date: 20160304
  Serious: No
  Sender: FDA-Public Use
  Company Number: US-BIO PRODUCTS LABORATORY LTD-1044349

PATIENT
  Age: 64 Year
  Sex: Female

DRUGS (2)
  1. VITAMIN SUPPLEMENTS [Concomitant]
     Active Substance: VITAMINS
  2. GAMMAPLEX [Suspect]
     Active Substance: HUMAN IMMUNOGLOBULIN G
     Route: 042

REACTIONS (1)
  - Thrombocytopenia [Unknown]
